FAERS Safety Report 5188920-4 (Version None)
Quarter: 2006Q4

REPORT INFORMATION
  Report Type: 
  Country: None (occurrence: None)
  Receive Date: 20061221
  Receipt Date: 20061013
  Transmission Date: 20070319
  Serious: No
  Sender: FDA-Public Use
  Company Number: US-AMGEN-US196996

PATIENT
  Sex: Female

DRUGS (1)
  1. ENBREL [Suspect]
     Indication: RHEUMATOID ARTHRITIS
     Route: 058
     Dates: start: 20060821

REACTIONS (5)
  - CHILLS [None]
  - MUSCULOSKELETAL STIFFNESS [None]
  - RASH [None]
  - URTICARIA [None]
  - WEIGHT INCREASED [None]
